FAERS Safety Report 4906783-6 (Version None)
Quarter: 2006Q1

REPORT INFORMATION
  Report Type: 
  Country: None (occurrence: None)
  Receive Date: 20060207
  Receipt Date: 20060124
  Transmission Date: 20060701
  Serious: Yes (Other)
  Sender: FDA-Public Use
  Company Number: 221471

PATIENT
  Age: 75 Year
  Sex: Female

DRUGS (1)
  1. RITUXAN (RITUXIMAB) CONC FOR SOLUTION FOR INFUSION [Suspect]
     Indication: NEUROPATHY
     Dosage: 375 MG/M2, 1/WEEK,

REACTIONS (6)
  - B-LYMPHOCYTE COUNT DECREASED [None]
  - BLOOD IMMUNOGLOBULIN M DECREASED [None]
  - CONDITION AGGRAVATED [None]
  - COORDINATION ABNORMAL [None]
  - MUSCULAR WEAKNESS [None]
  - POLYNEUROPATHY [None]
